FAERS Safety Report 9020928 (Version 1)
Quarter: 2013Q1

REPORT INFORMATION
  Report Type: Spontaneous
  Country: US (occurrence: US)
  Receive Date: 20130119
  Receipt Date: 20130119
  Transmission Date: 20140127
  Serious: No
  Sender: FDA-Public Use
  Company Number: US-ALLERGAN-1205017US

PATIENT
  Sex: Male

DRUGS (2)
  1. BOTOX? [Suspect]
     Indication: TORTICOLLIS
     Dosage: 400 UNITS, SINGLE
     Route: 030
     Dates: start: 20120123, end: 20120123
  2. BOTOX? [Suspect]
     Dosage: 300 UNITS, SINGLE
     Route: 030
     Dates: start: 20111019, end: 20111019

REACTIONS (3)
  - Posture abnormal [Unknown]
  - Dysphagia [Unknown]
  - Therapeutic response decreased [Unknown]
